FAERS Safety Report 10222139 (Version 1)
Quarter: 2014Q2

REPORT INFORMATION
  Report Type: Spontaneous
  Country: US (occurrence: US)
  Receive Date: 20140606
  Receipt Date: 20140606
  Transmission Date: 20141212
  Serious: No
  Sender: FDA-Public Use
  Company Number: US-BIOMARINAP-US-2014-103148

PATIENT
  Sex: Female

DRUGS (2)
  1. NAGLAZYME [Suspect]
     Indication: PRODUCT USED FOR UNKNOWN INDICATION
     Dosage: UNK, QW
     Route: 041
  2. NAGLAZYME [Suspect]
     Dosage: 30 MG, QW
     Route: 041
     Dates: start: 20140425

REACTIONS (1)
  - Nasopharyngitis [Unknown]
